FAERS Safety Report 14276500 (Version 2)
Quarter: 2017Q4

REPORT INFORMATION
  Report Type: Report from Study
  Country: None (occurrence: CA)
  Receive Date: 20171212
  Receipt Date: 20171219
  Transmission Date: 20180321
  Serious: Yes (Hospitalization)
  Sender: FDA-Public Use
  Company Number: CA-ABBVIE-17K-028-2189949-00

PATIENT
  Age: 12 Year
  Sex: Female

DRUGS (2)
  1. HUMIRA [Suspect]
     Active Substance: ADALIMUMAB
     Indication: CROHN^S DISEASE
     Route: 058
     Dates: start: 20171027, end: 20171121
  2. CORTISONE [Concomitant]
     Active Substance: CORTISONE\HYDROCORTISONE
     Indication: CROHN^S DISEASE

REACTIONS (4)
  - Gastrointestinal wall thickening [Unknown]
  - Crohn^s disease [Not Recovered/Not Resolved]
  - Drug effect decreased [Unknown]
  - Haematochezia [Unknown]

NARRATIVE: CASE EVENT DATE: 2017
